FAERS Safety Report 10173562 (Version 1)
Quarter: 2014Q2

REPORT INFORMATION
  Report Type: Spontaneous
  Country: US (occurrence: None)
  Receive Date: 20140514
  Receipt Date: 20140514
  Transmission Date: 20141212
  Serious: Yes (Disabling)
  Sender: FDA-Public Use
  Company Number: None

PATIENT
  Age: 15 Year
  Sex: Female
  Weight: 52.16 kg

DRUGS (1)
  1. DEPO PROVERA [Suspect]
     Indication: CONTRACEPTION
     Dosage: INJECTION, EVERY 12 WEEKS, INTO MUSCLE
     Route: 048

REACTIONS (11)
  - Musculoskeletal pain [None]
  - Fatigue [None]
  - Dizziness [None]
  - Nausea [None]
  - Aphthous stomatitis [None]
  - Autoimmune progesterone dermatitis [None]
  - Drug hypersensitivity [None]
  - Cross sensitivity reaction [None]
  - Autoimmune disorder [None]
  - Hypersensitivity [None]
  - Cystitis interstitial [None]
